FAERS Safety Report 4343864-2 (Version None)
Quarter: 2004Q2

REPORT INFORMATION
  Report Type: 
  Country: None (occurrence: None)
  Receive Date: 20040421
  Receipt Date: 20040421
  Transmission Date: 20050107
  Serious: Yes (Other)
  Sender: FDA-Public Use
  Company Number: None

PATIENT

DRUGS (1)
  1. AMIKACIN [Suspect]
     Dosage: 500 MG IM BID X 9 DAYS
     Route: 030
     Dates: start: 20040324, end: 20040402

REACTIONS (4)
  - CHEST PAIN [None]
  - DYSPNOEA [None]
  - ERYTHEMA [None]
  - PYREXIA [None]
